FAERS Safety Report 6412425-3 (Version None)
Quarter: 2009Q4

REPORT INFORMATION
  Report Type: 
  Country: None (occurrence: None)
  Receive Date: 20091023
  Receipt Date: 20091019
  Transmission Date: 20100525
  Serious: Yes (Other)
  Sender: FDA-Public Use
  Company Number: US-MERCK-0910USA02506

PATIENT
  Age: 78 Year
  Sex: Male

DRUGS (11)
  1. DECADRON [Suspect]
     Route: 048
     Dates: end: 20090916
  2. REVLIMID [Concomitant]
     Indication: MULTIPLE MYELOMA
     Route: 048
     Dates: start: 20090722
  3. UROXATRAL [Concomitant]
     Route: 048
  4. AMLODIPINE [Concomitant]
     Route: 048
  5. GABAPENTIN [Concomitant]
     Route: 048
  6. ONDANSETRON [Concomitant]
     Route: 048
  7. LEVOTHYROXINE SODIUM [Concomitant]
     Route: 048
  8. NEXIUM [Concomitant]
     Route: 048
  9. ALLOPURINOL [Concomitant]
     Route: 048
  10. ROZEREM [Concomitant]
     Route: 048
  11. PROPOXYPHENE [Concomitant]
     Route: 048

REACTIONS (4)
  - CONFUSIONAL STATE [None]
  - MEMORY IMPAIRMENT [None]
  - SYNCOPE [None]
  - TREMOR [None]
